FAERS Safety Report 4841285-7 (Version None)
Quarter: 2005Q4

REPORT INFORMATION
  Report Type: 
  Country: None (occurrence: None)
  Receive Date: 20051130
  Receipt Date: 20051120
  Transmission Date: 20060501
  Serious: Yes (Other)
  Sender: FDA-Public Use
  Company Number: PHBS2005IL17030

PATIENT
  Age: 70 Year
  Sex: Male

DRUGS (1)
  1. AREDIA [Suspect]
     Indication: MULTIPLE MYELOMA
     Route: 042
     Dates: start: 20021101, end: 20020501

REACTIONS (3)
  - ACTINOMYCOSIS [None]
  - DENTAL IMPLANTATION [None]
  - OSTEONECROSIS [None]
